FAERS Safety Report 11176049 (Version 1)
Quarter: 2015Q2

REPORT INFORMATION
  Report Type: Spontaneous
  Country: TW (occurrence: TW)
  Receive Date: 20150609
  Receipt Date: 20150609
  Transmission Date: 20150821
  Serious: Yes (Other)
  Sender: FDA-Public Use
  Company Number: TW-BAXTER-2015BAX029459

PATIENT
  Age: 41 Year
  Sex: Male

DRUGS (7)
  1. HIGHLY CONCENTRATED POTASSIUM CHLORIDE 300MEQ/L INJECTION [Suspect]
     Active Substance: POTASSIUM CHLORIDE
     Indication: SUPPLEMENTATION THERAPY
     Route: 042
  2. HIGHLY CONCENTRATED POTASSIUM CHLORIDE 300MEQ/L INJECTION [Suspect]
     Active Substance: POTASSIUM CHLORIDE
     Route: 042
  3. HIGHLY CONCENTRATED POTASSIUM CHLORIDE 300MEQ/L INJECTION [Suspect]
     Active Substance: POTASSIUM CHLORIDE
     Route: 042
  4. HIGHLY CONCENTRATED POTASSIUM CHLORIDE 300MEQ/L INJECTION [Suspect]
     Active Substance: POTASSIUM CHLORIDE
     Route: 042
  5. POTASSIUM CHLORIDE. [Suspect]
     Active Substance: POTASSIUM CHLORIDE
     Indication: SUPPLEMENTATION THERAPY
     Route: 048
  6. PROPRANOLOL [Concomitant]
     Active Substance: PROPRANOLOL\PROPRANOLOL HYDROCHLORIDE
     Indication: BASEDOW^S DISEASE
     Dosage: 80 MILLIGRAM PER DAY
     Route: 048
  7. METHIMAZOLE. [Concomitant]
     Active Substance: METHIMAZOLE
     Indication: BASEDOW^S DISEASE
     Dosage: 15 MILLIGRAM PER DAY
     Route: 065

REACTIONS (7)
  - Hypokalaemia [Recovered/Resolved]
  - Paradoxical drug reaction [None]
  - Cardiogenic shock [Recovered/Resolved]
  - Atrioventricular block complete [Recovered/Resolved]
  - Rebound effect [Recovered/Resolved]
  - Hyperkalaemia [Recovered/Resolved]
  - Respiratory failure [Recovered/Resolved]
